FAERS Safety Report 18767437 (Version 1)
Quarter: 2021Q1

REPORT INFORMATION
  Report Type: Spontaneous
  Country: US (occurrence: US)
  Receive Date: 20210120
  Receipt Date: 20210120
  Transmission Date: 20210419
  Serious: No
  Sender: FDA-Public Use
  Company Number: None

PATIENT
  Sex: Female

DRUGS (11)
  1. SEVELAMER [Concomitant]
     Active Substance: SEVELAMER
  2. AMBRISENTAN 10MG [Suspect]
     Active Substance: AMBRISENTAN
     Indication: PULMONARY ARTERIAL HYPERTENSION
     Route: 048
     Dates: start: 20191219
  3. POT CHLORIDE [Concomitant]
     Active Substance: POTASSIUM CHLORIDE
  4. PROMETHAZINE [Concomitant]
     Active Substance: PROMETHAZINE HYDROCHLORIDE
  5. CALCITROL [Concomitant]
  6. NYSTATIN. [Concomitant]
     Active Substance: NYSTATIN
  7. TRMADOL [Concomitant]
     Active Substance: TRAMADOL
  8. TRAZODONE [Concomitant]
     Active Substance: TRAZODONE HYDROCHLORIDE
  9. URISODIOL [Concomitant]
  10. INCRUSE ELLIPTA [Concomitant]
     Active Substance: UMECLIDINIUM BROMIDE
  11. MIDODRINE [Concomitant]
     Active Substance: MIDODRINE

REACTIONS (2)
  - Hypotension [None]
  - Fall [None]
